FAERS Safety Report 9576383 (Version 1)
Quarter: 2013Q4

REPORT INFORMATION
  Report Type: Spontaneous
  Country: US (occurrence: US)
  Receive Date: 20131001
  Receipt Date: 20131001
  Transmission Date: 20140711
  Serious: No
  Sender: FDA-Public Use
  Company Number: US-AMGEN-USASP2013002733

PATIENT
  Age: 56 Year
  Sex: Male

DRUGS (1)
  1. ENBREL [Suspect]
     Indication: RHEUMATOID ARTHRITIS
     Dosage: 50 MG, QWK
     Route: 058
     Dates: start: 20121008

REACTIONS (6)
  - Fall [Recovering/Resolving]
  - Hand fracture [Recovering/Resolving]
  - Joint injury [Unknown]
  - Laceration [Recovering/Resolving]
  - Limb crushing injury [Recovering/Resolving]
  - Nasopharyngitis [Recovered/Resolved]
